FAERS Safety Report 7873464-9 (Version None)
Quarter: 2011Q4

REPORT INFORMATION
  Report Type: 
  Country: None (occurrence: None)
  Receive Date: 20111030
  Receipt Date: 20110504
  Transmission Date: 20120403
  Serious: No
  Sender: FDA-Public Use
  Company Number: US-AMGEN-USASP2011023398

PATIENT
  Sex: Female

DRUGS (7)
  1. MULTI-VITAMINS [Concomitant]
     Dosage: UNK
  2. ENBREL [Suspect]
     Dosage: 50 MG, 2 TIMES/WK
     Dates: start: 20110401
  3. SULFASALAZINE [Concomitant]
     Dosage: UNK
  4. MAGNESIUM [Concomitant]
     Dosage: UNK
  5. ENBREL [Suspect]
     Indication: PSORIATIC ARTHROPATHY
     Dosage: 50 MG, QWK
     Dates: start: 20110401, end: 20110401
  6. BIOTIN [Concomitant]
     Dosage: UNK
  7. CALCIUM [Concomitant]
     Dosage: UNK

REACTIONS (4)
  - MUSCULOSKELETAL PAIN [None]
  - NAIL DISORDER [None]
  - INJECTION SITE PAIN [None]
  - SKIN DISORDER [None]
